FAERS Safety Report 9014892 (Version 1)
Quarter: 2013Q1

REPORT INFORMATION
  Report Type: Spontaneous
  Country: US (occurrence: None)
  Receive Date: 20130109
  Receipt Date: 20130109
  Transmission Date: 20140127
  Serious: No
  Sender: FDA-Public Use
  Company Number: None

PATIENT
  Age: 42 Year
  Sex: Female
  Weight: 131.54 kg

DRUGS (3)
  1. PERCOCET [Suspect]
     Indication: PAIN
     Route: 048
  2. PERCOCET [Suspect]
     Indication: OSTEOARTHRITIS
     Route: 048
  3. PERCOCET [Suspect]
     Indication: FIBROMYALGIA
     Route: 048

REACTIONS (2)
  - Nausea [None]
  - Vomiting [None]
